FAERS Safety Report 5318224-8 (Version None)
Quarter: 2007Q2

REPORT INFORMATION
  Report Type: 
  Country: None (occurrence: None)
  Receive Date: 20070507
  Receipt Date: 20070425
  Transmission Date: 20071010
  Serious: Yes (Other)
  Sender: FDA-Public Use
  Company Number: SE-PFIZER INC-2007030125

PATIENT
  Sex: Male

DRUGS (6)
  1. XALATAN [Suspect]
  2. EMOVAT [Concomitant]
     Indication: ATOPY
  3. ELOCON [Concomitant]
     Indication: ATOPY
  4. INOLAXOL [Concomitant]
     Indication: INFLAMMATORY BOWEL DISEASE
  5. PROTOPIC [Concomitant]
     Indication: ATOPY
  6. TIMOLOL MALEATE [Concomitant]

REACTIONS (4)
  - CATARACT [None]
  - CHROMATOPSIA [None]
  - DRUG INTOLERANCE [None]
  - VISION BLURRED [None]
